FAERS Safety Report 7048819-5 (Version None)
Quarter: 2010Q4

REPORT INFORMATION
  Report Type: 
  Country: None (occurrence: None)
  Receive Date: 20101018
  Receipt Date: 20101005
  Transmission Date: 20110411
  Serious: Yes (Other)
  Sender: FDA-Public Use
  Company Number: FR-TEVA-250435ISR

PATIENT
  Sex: Male

DRUGS (3)
  1. RASAGILINE MESYLATE [Suspect]
     Indication: PARKINSON'S DISEASE
     Route: 048
     Dates: start: 20100517, end: 20100812
  2. PRAMIPEXOLE DIHYDROCHLORIDE [Concomitant]
     Dosage: 0.5 TAB
     Route: 048
     Dates: start: 20100610
  3. MADOPAR [Concomitant]
     Indication: PARKINSON'S DISEASE
     Route: 048
     Dates: start: 20100802

REACTIONS (1)
  - MALIGNANT MELANOMA [None]
